FAERS Safety Report 15853155 (Version 1)
Quarter: 2019Q1

REPORT INFORMATION
  Report Type: Spontaneous
  Country: US (occurrence: US)
  Receive Date: 20190119
  Receipt Date: 20190119
  Transmission Date: 20190417
  Serious: Yes (Other)
  Sender: FDA-Public Use
  Company Number: None

PATIENT
  Age: 65 Year
  Sex: Male
  Weight: 124.2 kg

DRUGS (10)
  1. VIT-D [Concomitant]
  2. LOSARTAN. [Suspect]
     Active Substance: LOSARTAN
     Indication: HYPERTENSION
     Dosage: ?          QUANTITY:1 TABLET(S);?
     Route: 048
  3. BI-PAP WITH O2 [Concomitant]
  4. METFORMIN [Concomitant]
     Active Substance: METFORMIN HYDROCHLORIDE
  5. PRANDIN [Concomitant]
     Active Substance: REPAGLINIDE
  6. INSULIN [Concomitant]
     Active Substance: INSULIN NOS
  7. AGGRENOX [Concomitant]
     Active Substance: ASPIRIN\DIPYRIDAMOLE
  8. PANTERZOLE [Concomitant]
  9. ZOLOFT [Concomitant]
     Active Substance: SERTRALINE HYDROCHLORIDE
  10. LOSARTAN. [Concomitant]
     Active Substance: LOSARTAN

REACTIONS (14)
  - Insomnia [None]
  - Pain in extremity [None]
  - Diarrhoea haemorrhagic [None]
  - Dry eye [None]
  - Blood pressure increased [None]
  - Syncope [None]
  - Abdominal pain upper [None]
  - Nasal congestion [None]
  - Fatigue [None]
  - Dizziness [None]
  - Burning sensation [None]
  - Headache [None]
  - Back pain [None]
  - Dry mouth [None]
